FAERS Safety Report 4448281-2 (Version None)
Quarter: 2004Q3

REPORT INFORMATION
  Report Type: 
  Country: None (occurrence: None)
  Receive Date: 20040913
  Receipt Date: 20040426
  Transmission Date: 20050211
  Serious: Yes (Life-Threatening, Hospitalization)
  Sender: FDA-Public Use
  Company Number: JP-MERCK-0404USA02580

PATIENT
  Age: 59 Year
  Sex: Female

DRUGS (13)
  1. TENORMIN [Suspect]
     Route: 048
     Dates: start: 20040413, end: 20040424
  2. CARVEDILOL [Suspect]
     Route: 048
     Dates: start: 20040408, end: 20040424
  3. PEPCID RPD [Suspect]
     Indication: GASTRIC ULCER
     Route: 048
     Dates: start: 20040405, end: 20040421
  4. DIFLUCAN [Concomitant]
     Route: 065
     Dates: start: 20040424, end: 20040427
  5. CORTRIL [Concomitant]
     Route: 048
     Dates: start: 20040413, end: 20040506
  6. XALATAN [Concomitant]
     Route: 065
     Dates: start: 20040330
  7. METOPIRONE [Suspect]
     Route: 048
     Dates: start: 20040405, end: 20040422
  8. METOPIRONE [Suspect]
     Route: 048
     Dates: start: 20040423, end: 20040424
  9. ADALAT [Concomitant]
     Route: 065
  10. SLOW-K [Suspect]
     Route: 048
     Dates: start: 20040406, end: 20040424
  11. ULCERLMIN [Concomitant]
     Route: 065
     Dates: start: 20040422
  12. BAKTAR [Concomitant]
     Route: 065
     Dates: start: 20040424, end: 20040427
  13. TRILOSTANE [Concomitant]
     Route: 065
     Dates: start: 20040424, end: 20040505

REACTIONS (4)
  - ADRENAL NEOPLASM [None]
  - GRANULOCYTOPENIA [None]
  - HEPATIC FUNCTION ABNORMAL [None]
  - RENAL IMPAIRMENT [None]
